FAERS Safety Report 7041064-9 (Version None)
Quarter: 2010Q3

REPORT INFORMATION
  Report Type: 
  Country: None (occurrence: None)
  Receive Date: 20100929
  Receipt Date: 20100616
  Transmission Date: 20110219
  Serious: No
  Sender: FDA-Public Use
  Company Number: US-WYE-H15734310

PATIENT
  Age: 52 Year
  Sex: Male
  Weight: 77.18 kg

DRUGS (6)
  1. PRISTIQ [Suspect]
     Indication: DEPRESSION
     Dosage: 25 MG 1X PER 1 DAY, 50 MG 1X PER 1 DAY
     Dates: start: 20100101, end: 20100609
  2. PRISTIQ [Suspect]
     Indication: DEPRESSION
     Dosage: 25 MG 1X PER 1 DAY, 50 MG 1X PER 1 DAY
     Dates: start: 20100610
  3. LAMICTAL [Concomitant]
  4. LITHIUM CARBONATE [Concomitant]
  5. SEROQUEL [Concomitant]
  6. LIPITOR [Concomitant]

REACTIONS (6)
  - ANGER [None]
  - ANXIETY [None]
  - BLOOD PRESSURE INCREASED [None]
  - DEPRESSION [None]
  - DRUG WITHDRAWAL SYNDROME [None]
  - IRRITABILITY [None]
